FAERS Safety Report 7125651-5 (Version None)
Quarter: 2010Q4

REPORT INFORMATION
  Report Type: 
  Country: None (occurrence: None)
  Receive Date: 20101129
  Receipt Date: 20101117
  Transmission Date: 20110411
  Serious: Yes (Congenital Anomaly)
  Sender: FDA-Public Use
  Company Number: A0679352A

PATIENT
  Sex: Female

DRUGS (6)
  1. PAXIL [Suspect]
     Indication: ANXIETY
     Dates: start: 20000101
  2. PAXIL CR [Suspect]
     Indication: ANXIETY
     Dates: end: 20050101
  3. MECLIZINE [Concomitant]
     Dates: start: 20000501
  4. SUDAFED 12 HOUR [Concomitant]
     Dates: start: 20000501
  5. IRON [Concomitant]
  6. MULTI-VITAMIN [Concomitant]

REACTIONS (3)
  - DRUG EXPOSURE DURING PREGNANCY [None]
  - HEART DISEASE CONGENITAL [None]
  - VENTRICULAR SEPTAL DEFECT [None]
